FAERS Safety Report 22064611 (Version 1)
Quarter: 2023Q1

REPORT INFORMATION
  Report Type: Spontaneous
  Country: US (occurrence: None)
  Receive Date: 20230304
  Receipt Date: 20230304
  Transmission Date: 20230418
  Serious: Yes (Disabling, Other)
  Sender: FDA-Public Use
  Company Number: None

PATIENT
  Age: 56 Year
  Sex: Male
  Weight: 103.5 kg

DRUGS (4)
  1. HUMULIN R U-500 KWIKPEN [Suspect]
     Active Substance: INSULIN HUMAN
     Indication: Diabetes mellitus
     Dosage: FREQUENCY : AT BEDTIME;?
     Route: 030
     Dates: start: 20221015, end: 20230303
  2. cpap [Concomitant]
  3. INSULIN NOS [Concomitant]
     Active Substance: INSULIN NOS
  4. COENZYME Q10 [Concomitant]
     Active Substance: DIETARY SUPPLEMENT\UBIDECARENONE

REACTIONS (4)
  - Blood glucose fluctuation [None]
  - Therapy interrupted [None]
  - Feeling abnormal [None]
  - Glycosylated haemoglobin increased [None]

NARRATIVE: CASE EVENT DATE: 20230302
